FAERS Safety Report 25860422 (Version 2)
Quarter: 2025Q4

REPORT INFORMATION
  Report Type: Spontaneous
  Country: US (occurrence: US)
  Receive Date: 20250929
  Receipt Date: 20251008
  Transmission Date: 20260117
  Serious: No
  Sender: BIOMARIN
  Company Number: US-BIOMARINAP-US-2025-168997

PATIENT
  Sex: Female
  Weight: 146.03 kg

DRUGS (4)
  1. PALYNZIQ [Suspect]
     Active Substance: PEGVALIASE-PQPZ
     Indication: Phenylketonuria
     Dosage: 60 MILLIGRAM, QD
  2. PALYNZIQ [Suspect]
     Active Substance: PEGVALIASE-PQPZ
     Dosage: UNK
  3. ZYRTEC [Concomitant]
     Active Substance: CETIRIZINE HYDROCHLORIDE
     Indication: Product used for unknown indication
     Dosage: 10 MILLIGRAM
  4. ADVIL [Concomitant]
     Active Substance: IBUPROFEN
     Indication: Product used for unknown indication
     Dosage: 200 MILLIGRAM

REACTIONS (1)
  - Tympanic membrane hyperaemia [Unknown]

NARRATIVE: CASE EVENT DATE: 20250901
